FAERS Safety Report 6718548-3 (Version None)
Quarter: 2010Q2

REPORT INFORMATION
  Report Type: 
  Country: None (occurrence: None)
  Receive Date: 20100510
  Receipt Date: 20100505
  Transmission Date: 20101027
  Serious: Yes (Hospitalization)
  Sender: FDA-Public Use
  Company Number: US-GILEAD-2010-0028850

PATIENT
  Sex: Female
  Weight: 43.584 kg

DRUGS (17)
  1. LETAIRIS [Suspect]
     Indication: PULMONARY ARTERIAL HYPERTENSION
     Route: 048
     Dates: start: 20090109
  2. REMODULIN [Concomitant]
  3. REVATIO [Concomitant]
  4. OXYGEN [Concomitant]
  5. LASIX [Concomitant]
  6. ADVAIR DISKUS 100/50 [Concomitant]
  7. PAROXETINE HCL [Concomitant]
  8. RANTIDINE [Concomitant]
  9. BISACODYL [Concomitant]
  10. XANAX [Concomitant]
  11. INDOMETHACIN [Concomitant]
  12. COLCHICINE [Concomitant]
  13. PLO GEL [Concomitant]
  14. MAG-OX [Concomitant]
  15. IRON [Concomitant]
  16. MULTI-VITAMIN [Concomitant]
  17. VITAMIN C [Concomitant]

REACTIONS (1)
  - SYNCOPE [None]
